FAERS Safety Report 9144153 (Version 1)
Quarter: 2013Q1

REPORT INFORMATION
  Report Type: Spontaneous
  Country: AU (occurrence: AU)
  Receive Date: 20130306
  Receipt Date: 20130306
  Transmission Date: 20140127
  Serious: Yes (Other)
  Sender: FDA-Public Use
  Company Number: AU-ROCHE-1195885

PATIENT
  Sex: Female

DRUGS (8)
  1. HERCEPTIN [Suspect]
     Indication: BREAST CANCER METASTATIC
     Route: 065
     Dates: start: 201105, end: 201107
  2. HERCEPTIN [Suspect]
     Route: 065
     Dates: start: 201108, end: 201111
  3. HERCEPTIN [Suspect]
     Route: 065
     Dates: start: 201201, end: 201210
  4. XELODA [Suspect]
     Indication: BREAST CANCER METASTATIC
     Route: 065
     Dates: start: 201211, end: 201302
  5. ABRAXANE [Concomitant]
     Route: 065
     Dates: start: 201105, end: 201107
  6. ABRAXANE [Concomitant]
     Route: 065
     Dates: start: 201201, end: 201210
  7. LAPATINIB [Concomitant]
  8. ENTECAVIR [Concomitant]

REACTIONS (3)
  - Pancytopenia [Unknown]
  - Sepsis [Unknown]
  - Disease progression [Unknown]
